FAERS Safety Report 16765791 (Version 2)
Quarter: 2019Q3

REPORT INFORMATION
  Report Type: Spontaneous
  Country: CL (occurrence: CL)
  Receive Date: 20190903
  Receipt Date: 20190917
  Transmission Date: 20191005
  Serious: Yes (Death, Hospitalization, Other)
  Sender: FDA-Public Use
  Company Number: PHHY2019CL203194

PATIENT
  Sex: Male

DRUGS (1)
  1. GLIVEC [Suspect]
     Active Substance: IMATINIB MESYLATE
     Indication: PRODUCT USED FOR UNKNOWN INDICATION
     Dosage: 400 MG, UNK
     Route: 065

REACTIONS (21)
  - Neoplasm progression [Fatal]
  - Tongue dry [Unknown]
  - Kyphosis [Unknown]
  - Bronchitis [Fatal]
  - Dysphonia [Unknown]
  - Gastrointestinal sounds abnormal [Unknown]
  - Capillary nail refill test abnormal [Unknown]
  - Fatigue [Unknown]
  - General physical health deterioration [Fatal]
  - Oxygen saturation decreased [Unknown]
  - Abdominal pain upper [Unknown]
  - Anuria [Unknown]
  - Hypotension [Unknown]
  - Cardio-respiratory arrest [Fatal]
  - Myocardial infarction [Unknown]
  - Tachypnoea [Unknown]
  - Rhonchi [Unknown]
  - Decreased appetite [Unknown]
  - Dyspnoea [Unknown]
  - Cyanosis [Unknown]
  - Varicose ulceration [Unknown]

NARRATIVE: CASE EVENT DATE: 20190822
